FAERS Safety Report 5323431-4 (Version None)
Quarter: 2007Q2

REPORT INFORMATION
  Report Type: 
  Country: None (occurrence: None)
  Receive Date: 20070514
  Receipt Date: 20070502
  Transmission Date: 20071010
  Serious: Yes (Hospitalization)
  Sender: FDA-Public Use
  Company Number: PHHO2007BE07657

PATIENT
  Age: 65 Year
  Sex: Female
  Weight: 70.2 kg

DRUGS (2)
  1. ZOLEDRONATE [Suspect]
     Indication: OSTEITIS DEFORMANS
     Dosage: 5 MG
     Route: 042
     Dates: start: 20061018
  2. DIURETICS [Concomitant]

REACTIONS (2)
  - HIP FRACTURE [None]
  - OSTEOSYNTHESIS [None]
